FAERS Safety Report 6848279-0 (Version None)
Quarter: 2010Q3

REPORT INFORMATION
  Report Type: 
  Country: None (occurrence: None)
  Receive Date: 20100714
  Receipt Date: 20100629
  Transmission Date: 20110219
  Serious: Yes (Hospitalization, Other)
  Sender: FDA-Public Use
  Company Number: 1000014510

PATIENT
  Age: 72 Year
  Sex: Female

DRUGS (11)
  1. ESCITALOPRAM [Suspect]
     Indication: DEPRESSION
     Dosage: 5 MG (5 MG, 1 IN 1 D), ORAL, 10 MG (10 MG, 1 IN 1 D), ORAL, 15 MG (15 MG, 1 IN 1 D), ORAL
     Route: 048
     Dates: start: 20100405, end: 20100407
  2. ESCITALOPRAM [Suspect]
     Indication: DEPRESSION
     Dosage: 5 MG (5 MG, 1 IN 1 D), ORAL, 10 MG (10 MG, 1 IN 1 D), ORAL, 15 MG (15 MG, 1 IN 1 D), ORAL
     Route: 048
     Dates: start: 20100408, end: 20100412
  3. ESCITALOPRAM [Suspect]
     Indication: DEPRESSION
     Dosage: 5 MG (5 MG, 1 IN 1 D), ORAL, 10 MG (10 MG, 1 IN 1 D), ORAL, 15 MG (15 MG, 1 IN 1 D), ORAL
     Route: 048
     Dates: start: 20100413
  4. AMITRIPTYLINE HYDROCHLORIDE [Suspect]
     Indication: DEPRESSION
     Dosage: 175 MG (175 MG, 1 IN 1 D), ORAL, 125 MG (125 MG, 1 IN 1 D), ORAL, 100 MG (100 MG, 1 IN 1 D), ORAL
     Route: 048
     Dates: start: 20070201, end: 20100409
  5. AMITRIPTYLINE HYDROCHLORIDE [Suspect]
     Indication: DEPRESSION
     Dosage: 175 MG (175 MG, 1 IN 1 D), ORAL, 125 MG (125 MG, 1 IN 1 D), ORAL, 100 MG (100 MG, 1 IN 1 D), ORAL
     Route: 048
     Dates: start: 20100410, end: 20100412
  6. AMITRIPTYLINE HYDROCHLORIDE [Suspect]
     Indication: DEPRESSION
     Dosage: 175 MG (175 MG, 1 IN 1 D), ORAL, 125 MG (125 MG, 1 IN 1 D), ORAL, 100 MG (100 MG, 1 IN 1 D), ORAL
     Route: 048
     Dates: start: 20100413
  7. MELPERON [Suspect]
     Dosage: 50 MG (50 MG, 1 IN 1 D), ORAL; 75 MG (75 MG, 1 IN 1 D), ORAL
     Route: 048
     Dates: start: 20070101, end: 20100405
  8. MELPERON [Suspect]
     Dosage: 50 MG (50 MG, 1 IN 1 D), ORAL; 75 MG (75 MG, 1 IN 1 D), ORAL
     Route: 048
     Dates: start: 20100406
  9. LANITOP [Concomitant]
  10. TRIAMTEREN [Concomitant]
  11. LORAZEPAM [Concomitant]

REACTIONS (9)
  - ATAXIA [None]
  - DEPRESSION [None]
  - DISEASE RECURRENCE [None]
  - DRUG INTERACTION [None]
  - DRUG LEVEL ABOVE THERAPEUTIC [None]
  - DYSARTHRIA [None]
  - FALL [None]
  - URINARY TRACT INFECTION [None]
  - VENTRICULAR EXTRASYSTOLES [None]
